FAERS Safety Report 21521001 (Version 2)
Quarter: 2022Q4

REPORT INFORMATION
  Report Type: Spontaneous
  Country: CO (occurrence: CO)
  Receive Date: 20221028
  Receipt Date: 20221121
  Transmission Date: 20230113
  Serious: Yes (Death, Other)
  Sender: FDA-Public Use
  Company Number: CO-HORIZON THERAPEUTICS-HZN-2022-008352

PATIENT

DRUGS (2)
  1. INTERFERON GAMMA-1B [Suspect]
     Active Substance: INTERFERON GAMMA-1B
     Indication: Osteopetrosis
     Dosage: 0.04 UG THREE TIMES A WEEK (MONDAY, WEDNESDAY AND FRIDAY)
     Route: 058
     Dates: start: 20211016, end: 20211222
  2. VIGABATRIN [Concomitant]
     Active Substance: VIGABATRIN

REACTIONS (3)
  - Haemorrhagic stroke [Fatal]
  - Weight increased [Unknown]
  - Body height increased [Unknown]

NARRATIVE: CASE EVENT DATE: 20211205
